FAERS Safety Report 9710434 (Version 2)
Quarter: 2013Q4

REPORT INFORMATION
  Report Type: Spontaneous
  Country: US (occurrence: US)
  Receive Date: 20131126
  Receipt Date: 20131126
  Transmission Date: 20140711
  Serious: No
  Sender: FDA-Public Use
  Company Number: US-BRISTOL-MYERS SQUIBB COMPANY-18987123

PATIENT
  Age: 57 Year
  Sex: Male
  Weight: 113.38 kg

DRUGS (3)
  1. BYDUREON [Suspect]
     Indication: TYPE 2 DIABETES MELLITUS
     Dosage: EXPIRATION DATE:JUN2015?PRESCRIPTION:316963?2MG INJ/SQ,26MAY2013-ONG
     Route: 058
     Dates: start: 20130526
  2. EXENATIDE 10MCG PEN, DISPOSABLE DEVICE [Concomitant]
  3. METFORMIN [Concomitant]

REACTIONS (1)
  - Injection site haemorrhage [Recovered/Resolved]
